FAERS Safety Report 7061418-4 (Version None)
Quarter: 2010Q4

REPORT INFORMATION
  Report Type: 
  Country: None (occurrence: None)
  Receive Date: 20101026
  Receipt Date: 20101019
  Transmission Date: 20110411
  Serious: Yes (Life-Threatening, Hospitalization)
  Sender: FDA-Public Use
  Company Number: JP-SANOFI-AVENTIS-2010SA053961

PATIENT
  Age: 82 Year
  Sex: Male
  Weight: 61 kg

DRUGS (9)
  1. PLAVIX [Suspect]
     Route: 048
     Dates: start: 20090804, end: 20100330
  2. PLAVIX [Suspect]
     Route: 048
     Dates: start: 20100428
  3. PARIET [Concomitant]
     Route: 048
     Dates: start: 20081031
  4. SUCRALFATE [Concomitant]
     Route: 048
     Dates: start: 20090811
  5. AM [Concomitant]
     Route: 048
     Dates: start: 20090811
  6. ANALGESICS [Concomitant]
     Indication: HEADACHE
     Route: 048
     Dates: start: 20090908
  7. CEROCRAL [Concomitant]
     Route: 048
     Dates: start: 20091026
  8. MAGNESIUM OXIDE [Concomitant]
     Indication: CONSTIPATION
     Route: 048
     Dates: start: 20091128
  9. LASIX [Concomitant]
     Route: 048
     Dates: start: 20091129

REACTIONS (2)
  - ATRIOVENTRICULAR BLOCK SECOND DEGREE [None]
  - EPISTAXIS [None]
